FAERS Safety Report 12885208 (Version 1)
Quarter: 2016Q4

REPORT INFORMATION
  Report Type: Spontaneous
  Country: CA (occurrence: CA)
  Receive Date: 20161026
  Receipt Date: 20161026
  Transmission Date: 20170207
  Serious: Yes (Other)
  Sender: FDA-Public Use
  Company Number: CA-TEVA-705237USA

PATIENT
  Age: 56 Year
  Sex: Female

DRUGS (3)
  1. BETAMETHASONE DIPROPIONATE, CALCIPOTRIOL [Suspect]
     Active Substance: BETAMETHASONE DIPROPIONATE\CALCIPOTRIENE
     Indication: PSORIASIS
     Dosage: TWICE DAILY
     Route: 061
  2. BETAMETHASONE. [Suspect]
     Active Substance: BETAMETHASONE
     Indication: PSORIASIS
     Dosage: CONC: 0.1%
     Route: 061
  3. CLOBETASOL [Suspect]
     Active Substance: CLOBETASOL
     Indication: PSORIASIS
     Dosage: CONC: 0.05%
     Route: 061

REACTIONS (1)
  - Chorioretinopathy [Recovered/Resolved]
